FAERS Safety Report 18187378 (Version 1)
Quarter: 2020Q3

REPORT INFORMATION
  Report Type: Spontaneous
  Country: NL (occurrence: NL)
  Receive Date: 20200824
  Receipt Date: 20200824
  Transmission Date: 20201103
  Serious: Yes (Hospitalization)
  Sender: FDA-Public Use
  Company Number: NL-PFIZER INC-2020325504

PATIENT
  Age: 47 Year
  Sex: Male

DRUGS (1)
  1. VYNDAQEL [Suspect]
     Active Substance: TAFAMIDIS MEGLUMINE
     Dosage: UNK

REACTIONS (5)
  - Headache [Recovering/Resolving]
  - Hyporesponsive to stimuli [Recovering/Resolving]
  - Appendicitis perforated [Unknown]
  - Meningitis bacterial [Unknown]
  - Peritonitis [Unknown]
